FAERS Safety Report 12839381 (Version 1)
Quarter: 2016Q4

REPORT INFORMATION
  Report Type: Spontaneous
  Country: US (occurrence: US)
  Receive Date: 20161010
  Receipt Date: 20161010
  Transmission Date: 20170207
  Serious: Yes (Life-Threatening, Hospitalization)
  Sender: FDA-Public Use
  Company Number: None

PATIENT
  Age: 64 Year
  Sex: Female
  Weight: 60.75 kg

DRUGS (11)
  1. ADVAIR HFA [Concomitant]
     Active Substance: FLUTICASONE PROPIONATE\SALMETEROL XINAFOATE
  2. SERMORELIN ACETATE/GHRP (2)+(6) [Suspect]
     Active Substance: GHRP-6\PRALMORELIN\SERMORELIN ACETATE
     Indication: SKIN DISORDER
     Dosage: ?          QUANTITY:1 INJECTION(S);?
     Route: 058
     Dates: start: 20160601, end: 20160709
  3. PANTOPRAZOLE [Concomitant]
     Active Substance: PANTOPRAZOLE SODIUM
  4. FLONASE [Concomitant]
     Active Substance: FLUTICASONE PROPIONATE
  5. DHEA [Concomitant]
     Active Substance: PRASTERONE
  6. BYSTOLIC [Concomitant]
     Active Substance: NEBIVOLOL HYDROCHLORIDE
  7. VITAMIN D3 [Concomitant]
     Active Substance: CHOLECALCIFEROL
  8. SERMORELIN ACETATE/GHRP (2)+(6) [Suspect]
     Active Substance: GHRP-6\PRALMORELIN\SERMORELIN ACETATE
     Indication: MENTAL DISORDER
     Dosage: ?          QUANTITY:1 INJECTION(S);?
     Route: 058
     Dates: start: 20160601, end: 20160709
  9. SAVELLA [Concomitant]
     Active Substance: MILNACIPRAN HYDROCHLORIDE
  10. ESTRADIOL. [Concomitant]
     Active Substance: ESTRADIOL
  11. SERMORELIN ACETATE/GHRP (2)+(6) [Suspect]
     Active Substance: GHRP-6\PRALMORELIN\SERMORELIN ACETATE
     Indication: MUSCLE TONE DISORDER
     Dosage: ?          QUANTITY:1 INJECTION(S);?
     Route: 058
     Dates: start: 20160601, end: 20160709

REACTIONS (5)
  - Nausea [None]
  - Vomiting [None]
  - Pancreatitis acute [None]
  - Abdominal pain upper [None]
  - Product physical consistency issue [None]

NARRATIVE: CASE EVENT DATE: 20160710
